FAERS Safety Report 8076444-6 (Version None)
Quarter: 2012Q1

REPORT INFORMATION
  Report Type: 
  Country: None (occurrence: None)
  Receive Date: 20120127
  Receipt Date: 20120118
  Transmission Date: 20120608
  Serious: Yes (Hospitalization)
  Sender: FDA-Public Use
  Company Number: GB-ROCHE-760902

PATIENT
  Sex: Male
  Weight: 87.3 kg

DRUGS (25)
  1. COPEGUS [Suspect]
     Indication: HEPATITIS C
     Route: 048
     Dates: start: 20100303, end: 20100721
  2. MESALAMINE [Concomitant]
     Indication: COLITIS ULCERATIVE
     Route: 048
     Dates: start: 20100610
  3. FUCIDINE CAP [Concomitant]
     Indication: SCROTAL ERYTHEMA
  4. CETIRIZINE [Concomitant]
     Indication: PRURITUS GENITAL
     Route: 061
  5. MESALAMINE [Concomitant]
     Indication: FREQUENT BOWEL MOVEMENTS
     Route: 054
     Dates: start: 20100610
  6. PEGINTERFERON ALFA-2A [Suspect]
     Indication: HEPATITIS C
     Route: 058
     Dates: start: 20100303, end: 20100714
  7. ADCAL [Concomitant]
     Dosage: FORM: CHEWABLE TABLET
     Route: 048
  8. PREDNISOLONE [Concomitant]
     Indication: FREQUENT BOWEL MOVEMENTS
     Route: 048
     Dates: start: 20100713
  9. ATORVASTATIN [Concomitant]
     Indication: HYPERCHOLESTEROLAEMIA
     Route: 048
  10. FUCIDINE CAP [Concomitant]
     Indication: PRURITUS GENITAL
     Route: 061
     Dates: start: 20100622
  11. TMC435 (NS3/4A PROTEASE INHIBITOR) [Suspect]
     Indication: HEPATITIS C
     Route: 048
     Dates: start: 20100303, end: 20100712
  12. CODEINE PHOSPHATE [Concomitant]
     Indication: ABDOMINAL PAIN
     Route: 048
     Dates: start: 20100610
  13. CETIRIZINE [Concomitant]
     Indication: SCROTAL ERYTHEMA
  14. E45 (UNITED KINGDOM) [Concomitant]
     Indication: PRURITUS GENITAL
     Route: 061
     Dates: start: 20100615
  15. MESALAMINE [Concomitant]
     Indication: COLITIS ULCERATIVE
  16. ZOPICLONE [Concomitant]
     Indication: SLEEP DISORDER
     Route: 048
  17. MESALAMINE [Concomitant]
     Indication: RECTAL HAEMORRHAGE
  18. E45 (UNITED KINGDOM) [Concomitant]
     Indication: SCROTAL ERYTHEMA
  19. MIRTAZAPINE [Concomitant]
     Indication: DEPRESSION
     Dosage: FORM; DISPERSIBLE TABLET, FREQUENCY: ON
     Route: 048
  20. ACETAMINOPHEN [Concomitant]
     Route: 048
  21. PEPTAC [Concomitant]
     Dosage: FREQUENCY: PRN
     Route: 048
  22. ASPIRIN [Concomitant]
  23. ALLOPURINOL [Concomitant]
     Indication: PROPHYLAXIS
  24. PREDNISOLONE [Concomitant]
     Indication: COLITIS ULCERATIVE
  25. PREDNISOLONE [Concomitant]
     Indication: RECTAL HAEMORRHAGE

REACTIONS (1)
  - PROCTITIS ULCERATIVE [None]
